FAERS Safety Report 6426426-2 (Version None)
Quarter: 2009Q4

REPORT INFORMATION
  Report Type: 
  Country: None (occurrence: None)
  Receive Date: 20091104
  Receipt Date: 20091021
  Transmission Date: 20100525
  Serious: Yes (Hospitalization, Other)
  Sender: FDA-Public Use
  Company Number: PHHY2009DE34789

PATIENT
  Sex: Male
  Weight: 107 kg

DRUGS (4)
  1. ZOMETA [Suspect]
     Indication: BONE DISORDER
     Dosage: 4 MG EVERY 4 WEEKS
     Route: 042
     Dates: start: 20081124
  2. SIOFOR [Concomitant]
     Dosage: 1000 MG, UNK
  3. METHOTREXAT [Concomitant]
     Dosage: 80 MG WEEKLY
     Route: 042
     Dates: start: 19981113, end: 20090723
  4. OLMESARTAN MEDOXOMIL AND HYDROCHLOROTHIZIDE [Concomitant]
     Dosage: 2 X 1/2

REACTIONS (5)
  - GENERAL PHYSICAL HEALTH DETERIORATION [None]
  - JAW OPERATION [None]
  - LIVER FUNCTION TEST ABNORMAL [None]
  - MALIGNANT NEOPLASM PROGRESSION [None]
  - METASTASES TO LYMPH NODES [None]
